FAERS Safety Report 6216888-8 (Version None)
Quarter: 2009Q2

REPORT INFORMATION
  Report Type: 
  Country: None (occurrence: None)
  Receive Date: 20090605
  Receipt Date: 20090528
  Transmission Date: 20091009
  Serious: Yes (Other)
  Sender: FDA-Public Use
  Company Number: US-AMGEN-QUU344127

PATIENT
  Sex: Female
  Weight: 86.3 kg

DRUGS (4)
  1. ENBREL [Suspect]
     Indication: PSORIATIC ARTHROPATHY
     Route: 058
     Dates: start: 20090420
  2. METHOTREXATE [Concomitant]
     Dates: start: 20090101
  3. UNSPECIFIED CONTRACEPTIVE [Concomitant]
     Dates: start: 20040101
  4. FOLIC ACID [Concomitant]
     Dates: start: 20090101

REACTIONS (11)
  - ARTHRALGIA [None]
  - ASTHENIA [None]
  - DYSPNOEA [None]
  - EMOTIONAL DISTRESS [None]
  - FLUSHING [None]
  - MUSCULAR WEAKNESS [None]
  - NERVOUSNESS [None]
  - PALLOR [None]
  - PALPITATIONS [None]
  - PYREXIA [None]
  - TACHYCARDIA [None]
